FAERS Safety Report 24537505 (Version 9)
Quarter: 2025Q4

REPORT INFORMATION
  Report Type: Report from Study
  Country: US (occurrence: US)
  Receive Date: 20241023
  Receipt Date: 20251030
  Transmission Date: 20260117
  Serious: Yes (Hospitalization)
  Sender: INSMED
  Company Number: US-INSMED, INC.-2024-02227-US

PATIENT
  Sex: Female

DRUGS (20)
  1. ARIKAYCE [Suspect]
     Active Substance: AMIKACIN
     Indication: Mycobacterium avium complex infection
     Dosage: 590 MILLIGRAM, QD
     Route: 055
     Dates: start: 20240306, end: 202505
  2. ARIKAYCE [Suspect]
     Active Substance: AMIKACIN
     Dosage: 590 MILLIGRAM, QD
     Route: 055
     Dates: start: 2025
  3. AMIKACIN [Suspect]
     Active Substance: AMIKACIN
     Indication: Product used for unknown indication
     Dosage: UNK, UNK
     Route: 042
     Dates: end: 2024
  4. CARVEDILOL [Concomitant]
     Active Substance: CARVEDILOL
     Indication: Product used for unknown indication
     Dosage: UNK, UNK
     Route: 065
  5. CYCLOPENTOLATE [Concomitant]
     Active Substance: CYCLOPENTOLATE
     Indication: Product used for unknown indication
     Dosage: UNK, UNK
     Route: 065
  6. CYCLOSPORINE [Concomitant]
     Active Substance: CYCLOSPORINE
     Indication: Product used for unknown indication
     Dosage: UNK, UNK
     Route: 065
  7. ESTRADIOL [Concomitant]
     Active Substance: ESTRADIOL
     Indication: Product used for unknown indication
     Dosage: UNK, UNK
     Route: 067
  8. FAMOTIDINE [Concomitant]
     Active Substance: FAMOTIDINE
     Indication: Product used for unknown indication
     Dosage: UNK, UNK
     Route: 065
  9. IPRATROPIUM BROMIDE [Concomitant]
     Active Substance: IPRATROPIUM BROMIDE
     Indication: Product used for unknown indication
     Dosage: UNK, UNK
     Route: 055
  10. NUZYRA [Concomitant]
     Active Substance: OMADACYCLINE
     Indication: Product used for unknown indication
     Dosage: UNK, UNK
     Route: 065
  11. CLOFAZIMINE [Concomitant]
     Active Substance: CLOFAZIMINE
     Indication: Product used for unknown indication
     Dosage: UNK, UNK
     Route: 065
  12. TRAZODONE [Concomitant]
     Active Substance: TRAZODONE HYDROCHLORIDE
     Indication: Product used for unknown indication
     Dosage: UNK, UNK
     Route: 065
  13. DULOXETINE [Concomitant]
     Active Substance: DULOXETINE
     Indication: Product used for unknown indication
     Dosage: UNK, UNK
     Route: 065
  14. SYNTHROID [Concomitant]
     Active Substance: LEVOTHYROXINE SODIUM
     Indication: Product used for unknown indication
     Dosage: UNK, UNK
     Route: 065
  15. LETROZOLE [Concomitant]
     Active Substance: LETROZOLE
     Indication: Product used for unknown indication
     Dosage: UNK, UNK
     Route: 065
  16. LIOTHYRONINE [Concomitant]
     Active Substance: LIOTHYRONINE
     Indication: Product used for unknown indication
     Dosage: UNK, UNK
     Route: 065
  17. ENTRESTO [Concomitant]
     Active Substance: SACUBITRIL\VALSARTAN
     Indication: Product used for unknown indication
     Dosage: UNK, UNK
     Route: 065
  18. SPIRONOLACTONE [Concomitant]
     Active Substance: SPIRONOLACTONE
     Indication: Product used for unknown indication
     Dosage: UNK, UNK
     Route: 065
  19. OMEPRAZOLE [Concomitant]
     Active Substance: OMEPRAZOLE
     Indication: Product used for unknown indication
     Dosage: UNK, UNK
     Route: 065
  20. ELIQUIS [Concomitant]
     Active Substance: APIXABAN
     Indication: Product used for unknown indication
     Dosage: UNK, UNK
     Route: 065

REACTIONS (12)
  - Hospitalisation [Unknown]
  - Blood creatinine increased [Not Recovered/Not Resolved]
  - Sputum retention [Unknown]
  - Oesophageal discomfort [Unknown]
  - Productive cough [Not Recovered/Not Resolved]
  - Cough [Not Recovered/Not Resolved]
  - Feeling abnormal [Recovering/Resolving]
  - Vomiting [Unknown]
  - Malaise [Unknown]
  - Ill-defined disorder [Not Recovered/Not Resolved]
  - Product dose omission issue [Unknown]
  - Intentional dose omission [Unknown]

NARRATIVE: CASE EVENT DATE: 20240101
